FAERS Safety Report 9891247 (Version 1)
Quarter: 2014Q1

REPORT INFORMATION
  Report Type: Spontaneous
  Country: BR (occurrence: BR)
  Receive Date: 20140212
  Receipt Date: 20140212
  Transmission Date: 20141002
  Serious: Yes (Other)
  Sender: FDA-Public Use
  Company Number: BR-ASTRAZENECA-2014SE08814

PATIENT
  Age: 70 Year
  Sex: Female

DRUGS (2)
  1. CRESTOR [Suspect]
     Indication: BLOOD CHOLESTEROL INCREASED
     Route: 048
     Dates: start: 20140127, end: 20140127
  2. DIOVAN [Concomitant]
     Indication: HYPERTENSION
     Dosage: 160/12.5 MG, 1/2 TABLET, DAILY
     Route: 048

REACTIONS (2)
  - Blood pressure increased [Recovered/Resolved]
  - Nausea [Recovered/Resolved]
